FAERS Safety Report 14662505 (Version 1)
Quarter: 2018Q1

REPORT INFORMATION
  Report Type: Report from Study
  Country: DE (occurrence: DE)
  Receive Date: 20180321
  Receipt Date: 20180321
  Transmission Date: 20180509
  Serious: Yes (Other)
  Sender: FDA-Public Use
  Company Number: DE-KADMON PHARMACEUTICALS, LLC-KAD-201803-01254

PATIENT
  Age: 38 Year
  Sex: Female
  Weight: 65 kg

DRUGS (35)
  1. PEGINTERFERON ALFA-2A. [Suspect]
     Active Substance: PEGINTERFERON ALFA-2A
     Route: 058
     Dates: start: 20131118, end: 20140317
  2. AMPHO MORONAL [Concomitant]
     Active Substance: AMPHOTERICIN B
     Dates: start: 20131230
  3. AMPHO MORONAL [Concomitant]
     Active Substance: AMPHOTERICIN B
     Dates: start: 20130610
  4. L-THYROXIN [Concomitant]
     Active Substance: LEVOTHYROXINE SODIUM
     Dates: start: 20130617
  5. UNACID PD [Concomitant]
     Active Substance: SULTAMICILLIN TOSYLATE
     Route: 048
     Dates: start: 20140324, end: 20140328
  6. IBUPROFEN. [Concomitant]
     Active Substance: IBUPROFEN
  7. L-THYROXIN [Concomitant]
     Active Substance: LEVOTHYROXINE SODIUM
     Dates: start: 20130722, end: 20130819
  8. AZITHROMYCIN ANHYDROUS. [Concomitant]
     Active Substance: AZITHROMYCIN ANHYDROUS
     Dates: start: 20130527, end: 20130529
  9. NEO-ANGIN [Concomitant]
     Dates: start: 20131118
  10. BUDESONIDE EASYHALER [Concomitant]
     Dates: start: 20140331
  11. RISPERIDON [Concomitant]
     Active Substance: RISPERIDONE
     Dates: start: 20140401, end: 20140408
  12. LOPERAMID [Concomitant]
     Active Substance: LOPERAMIDE
     Dates: start: 20130603, end: 20130603
  13. DEXAMYTREX [Concomitant]
     Active Substance: DEXAMETHASONE SODIUM PHOSPHATE\GENTAMICIN SULFATE
     Dates: start: 20130712
  14. METAMIZOL [Concomitant]
     Active Substance: METAMIZOLE SODIUM
     Dates: start: 20130627
  15. AZITHROMYCIN ANHYDROUS. [Concomitant]
     Active Substance: AZITHROMYCIN ANHYDROUS
     Dates: start: 20130627, end: 20130629
  16. AZITHROMYCIN ANHYDROUS. [Concomitant]
     Active Substance: AZITHROMYCIN ANHYDROUS
     Dates: start: 20141030, end: 20141104
  17. MIRTAZAPINE. [Concomitant]
     Active Substance: MIRTAZAPINE
     Dates: start: 20130402
  18. PEGINTERFERON ALFA-2A. [Suspect]
     Active Substance: PEGINTERFERON ALFA-2A
     Indication: CHRONIC HEPATITIS C
     Route: 058
     Dates: start: 20130415, end: 20131110
  19. CEFUROXIM [Concomitant]
     Active Substance: CEFUROXIME
     Dates: start: 20130603, end: 20130609
  20. RIBAVIRIN. [Suspect]
     Active Substance: RIBAVIRIN
     Indication: CHRONIC HEPATITIS C
     Route: 048
     Dates: start: 20130421, end: 20140317
  21. AZITHROMYCIN ANHYDROUS. [Concomitant]
     Active Substance: AZITHROMYCIN ANHYDROUS
     Dates: start: 20130503, end: 20130505
  22. VIVINOX [Concomitant]
     Dates: start: 20130909
  23. TETRACAINE HYDROCHLORIDE. [Concomitant]
     Active Substance: TETRACAINE HYDROCHLORIDE
     Dates: start: 20130627
  24. LOTRIDERM (LOTRISONE) [Concomitant]
     Dates: start: 20130610
  25. PEGINTERFERON ALFA-2A. [Suspect]
     Active Substance: PEGINTERFERON ALFA-2A
     Route: 058
     Dates: start: 20131111, end: 20131117
  26. L-THYROXIN [Concomitant]
     Active Substance: LEVOTHYROXINE SODIUM
     Dates: start: 20131202
  27. OMEPRAZOLE. [Concomitant]
     Active Substance: OMEPRAZOLE
     Dates: start: 20130503
  28. BETAGALEN [Concomitant]
     Dates: start: 20130426
  29. BEPANTHEN (PANTHENOL) [Concomitant]
     Active Substance: PANTHENOL
     Dosage: CREAM
     Dates: start: 20130603
  30. FUCICORT [Concomitant]
     Active Substance: BETAMETHASONE VALERATE\FUSIDIC ACID
     Dates: start: 20130715
  31. L-THYROXIN [Concomitant]
     Active Substance: LEVOTHYROXINE SODIUM
     Dates: start: 20130820, end: 20131202
  32. AZITHROMYCIN ANHYDROUS. [Concomitant]
     Active Substance: AZITHROMYCIN ANHYDROUS
     Dates: start: 20130712, end: 20130714
  33. AZITHROMYCIN ANHYDROUS. [Concomitant]
     Active Substance: AZITHROMYCIN ANHYDROUS
     Dates: start: 20140408, end: 20140410
  34. MEMANTINA [Concomitant]
     Active Substance: MEMANTINE HYDROCHLORIDE
     Dates: start: 20130627
  35. CITALOPRAM [Concomitant]
     Active Substance: CITALOPRAM HYDROBROMIDE
     Dosage: 1-0-0
     Dates: start: 20130320, end: 20130327

REACTIONS (16)
  - Eczema [Not Recovered/Not Resolved]
  - Gastroenteritis [Recovered/Resolved]
  - Angina pectoris [Not Recovered/Not Resolved]
  - Ear discomfort [Recovered/Resolved]
  - Dry skin [Not Recovered/Not Resolved]
  - Dizziness [Not Recovered/Not Resolved]
  - Lymphadenopathy [Recovered/Resolved]
  - Chest pain [Not Recovered/Not Resolved]
  - Decreased appetite [Not Recovered/Not Resolved]
  - Skin fissures [Not Recovered/Not Resolved]
  - Gastritis [Not Recovered/Not Resolved]
  - Irritability [Not Recovered/Not Resolved]
  - Night sweats [Not Recovered/Not Resolved]
  - Cyanosis [Not Recovered/Not Resolved]
  - Respiratory tract infection [Not Recovered/Not Resolved]
  - Visual impairment [Not Recovered/Not Resolved]

NARRATIVE: CASE EVENT DATE: 201304
